FAERS Safety Report 21341136 (Version 2)
Quarter: 2023Q2

REPORT INFORMATION
  Report Type: Report from Study
  Country: DE (occurrence: DE)
  Receive Date: 20220916
  Receipt Date: 20230428
  Transmission Date: 20230722
  Serious: Yes (Hospitalization, Other)
  Sender: FDA-Public Use
  Company Number: None

PATIENT
  Sex: Female

DRUGS (16)
  1. METHOTREXATE [Suspect]
     Active Substance: METHOTREXATE
     Indication: Rheumatoid arthritis
     Dosage: 10 MG, QW
  2. METHOTREXATE [Suspect]
     Active Substance: METHOTREXATE
  3. METHOTREXATE [Suspect]
     Active Substance: METHOTREXATE
  4. METHOTREXATE [Suspect]
     Active Substance: METHOTREXATE
     Dosage: 20 MG, UNIT DOSE : 20 MG, THERAPY END DATE : ASKU
     Dates: start: 20160802
  5. METHOTREXATE [Suspect]
     Active Substance: METHOTREXATE
     Dosage: 20 MG, UNIT DOSE : 20 MG, THERAPY END DATE : ASKU
     Dates: start: 20161115
  6. METHOTREXATE [Suspect]
     Active Substance: METHOTREXATE
     Dosage: 20 MG, UNIT DOSE : 20 MG, THERAPY END DATE : ASKU
     Dates: start: 20170218
  7. METHOTREXATE [Suspect]
     Active Substance: METHOTREXATE
     Dosage: 20 MG, UNIT DOSE : 20 MG, THERAPY END DATE : ASKU
     Dates: start: 20170829
  8. METHOTREXATE [Suspect]
     Active Substance: METHOTREXATE
     Dosage: 20 MG, UNIT DOSE : 20 MG, THERAPY END DATE : ASKU
     Dates: start: 20180216
  9. METHOTREXATE [Suspect]
     Active Substance: METHOTREXATE
     Dosage: 10 MG, UNIT DOSE : 10 MG, THERAPY END DATE : ASKU
     Dates: start: 20180725
  10. METHOTREXATE [Suspect]
     Active Substance: METHOTREXATE
     Dosage: 10 MG, UNIT DOSE : 10 MG, THERAPY END DATE : ASKU
     Dates: start: 20190213
  11. METHOTREXATE [Suspect]
     Active Substance: METHOTREXATE
     Dosage: 10 MG, UNIT DOSE : 10 MG, THERAPY END DATE : ASKU
     Dates: start: 20190806
  12. METHOTREXATE [Suspect]
     Active Substance: METHOTREXATE
     Dosage: 20 MG, UNIT DOSE : 20 MG, THERAPY END DATE : ASKU
     Dates: start: 20200217
  13. METHOTREXATE [Suspect]
     Active Substance: METHOTREXATE
     Dosage: 20 MG, UNIT DOSE : 20 MG, THERAPY END DATE : ASKU
     Dates: start: 20200824
  14. MABTHERA [Suspect]
     Active Substance: RITUXIMAB
     Indication: Rheumatoid arthritis
     Dates: start: 201702
  15. MABTHERA [Suspect]
     Active Substance: RITUXIMAB
     Dates: start: 201608
  16. RITUXIMAB [Suspect]
     Active Substance: RITUXIMAB
     Indication: Rheumatoid arthritis
     Dates: start: 201711, end: 20171130

REACTIONS (14)
  - Rheumatoid arthritis [Recovered/Resolved]
  - Lumbar spinal stenosis [Not Recovered/Not Resolved]
  - Device loosening [Not Recovered/Not Resolved]
  - Back pain [Not Recovered/Not Resolved]
  - Tricuspid valve incompetence [Unknown]
  - Rheumatoid arthritis [Recovered/Resolved]
  - Cubital tunnel syndrome [Not Recovered/Not Resolved]
  - Hyperkeratosis [Unknown]
  - Skin discolouration [Not Recovered/Not Resolved]
  - Oral herpes [Recovered/Resolved]
  - Rash [Recovered/Resolved]
  - Tinea pedis [Unknown]
  - Eczema nummular [Unknown]
  - Oral herpes [Recovered/Resolved]

NARRATIVE: CASE EVENT DATE: 20171101
